FAERS Safety Report 6547898-9 (Version None)
Quarter: 2010Q1

REPORT INFORMATION
  Report Type: 
  Country: None (occurrence: None)
  Receive Date: 20100124
  Receipt Date: 20091113
  Transmission Date: 20100710
  Serious: No
  Sender: FDA-Public Use
  Company Number: US-ALEXION-A200900981

PATIENT
  Sex: Female

DRUGS (6)
  1. SOLIRIS [Suspect]
     Indication: PAROXYSMAL NOCTURNAL HAEMOGLOBINURIA
     Dosage: 600 MG, UNK
     Route: 042
     Dates: start: 20070901
  2. SOLIRIS [Suspect]
     Dosage: 900 MG, UNK
     Route: 042
  3. ZYRTEC [Concomitant]
     Dosage: UNK
     Route: 048
  4. AMBIEN [Concomitant]
     Dosage: UNK
     Route: 048
  5. XANAX [Concomitant]
     Dosage: UNK
     Route: 048
  6. TAMOXIFEN CITRATE [Concomitant]
     Indication: BREAST CANCER
     Dosage: UNK

REACTIONS (1)
  - HAEMORRHAGIC OVARIAN CYST [None]
